FAERS Safety Report 7488090-3 (Version None)
Quarter: 2011Q2

REPORT INFORMATION
  Report Type: 
  Country: None (occurrence: None)
  Receive Date: 20110518
  Receipt Date: 20110516
  Transmission Date: 20111010
  Serious: Yes (Other)
  Sender: FDA-Public Use
  Company Number: US-PFIZER INC-2011104907

PATIENT
  Sex: Male

DRUGS (1)
  1. CHANTIX [Suspect]
     Dosage: UNK

REACTIONS (8)
  - SENSORY DISTURBANCE [None]
  - MANIA [None]
  - NERVOUSNESS [None]
  - AGGRESSION [None]
  - ANXIETY [None]
  - PERSONALITY CHANGE [None]
  - ANGER [None]
  - MOOD SWINGS [None]
